FAERS Safety Report 10265357 (Version 8)
Quarter: 2016Q4

REPORT INFORMATION
  Report Type: Report from Study
  Country: US (occurrence: US)
  Receive Date: 20140627
  Receipt Date: 20161028
  Transmission Date: 20170206
  Serious: Yes (Other)
  Sender: FDA-Public Use
  Company Number: US-SA-2014SA075878

PATIENT
  Age: 47 Year
  Sex: Male

DRUGS (2)
  1. AUBAGIO [Suspect]
     Active Substance: TERIFLUNOMIDE
     Indication: MULTIPLE SCLEROSIS
     Route: 048
     Dates: start: 20140516
  2. AUBAGIO [Suspect]
     Active Substance: TERIFLUNOMIDE
     Indication: MULTIPLE SCLEROSIS
     Route: 048
     Dates: start: 20140508

REACTIONS (20)
  - Pain in extremity [Not Recovered/Not Resolved]
  - Insomnia [Unknown]
  - Diarrhoea [Unknown]
  - Visual acuity reduced transiently [Unknown]
  - Balance disorder [Unknown]
  - Cold sweat [Unknown]
  - Peripheral swelling [Unknown]
  - Abasia [Unknown]
  - Sinus disorder [Unknown]
  - Urine odour abnormal [Unknown]
  - Fatigue [Unknown]
  - Anger [Unknown]
  - Musculoskeletal stiffness [Unknown]
  - Pain in extremity [Unknown]
  - Amnesia [Unknown]
  - Blindness [Unknown]
  - Multiple sclerosis relapse [Unknown]
  - Visual field defect [Unknown]
  - Headache [Unknown]
  - Depression [Unknown]

NARRATIVE: CASE EVENT DATE: 20140610
